FAERS Safety Report 7944563-8 (Version None)
Quarter: 2011Q4

REPORT INFORMATION
  Report Type: 
  Country: None (occurrence: None)
  Receive Date: 20111122
  Receipt Date: 20110802
  Transmission Date: 20120403
  Serious: No
  Sender: FDA-Public Use
  Company Number: PHHY2011US62884

PATIENT
  Age: 38 Year
  Sex: Female

DRUGS (1)
  1. GILENYA [Suspect]
     Indication: RELAPSING-REMITTING MULTIPLE SCLEROSIS
     Dosage: 0.5 MG, DAILY, ORAL
     Route: 048
     Dates: start: 20110706, end: 20110718

REACTIONS (6)
  - VISUAL IMPAIRMENT [None]
  - VOMITING [None]
  - DIARRHOEA [None]
  - NAUSEA [None]
  - MALAISE [None]
  - HEADACHE [None]
